FAERS Safety Report 8021461-5 (Version None)
Quarter: 2012Q1

REPORT INFORMATION
  Report Type: 
  Country: None (occurrence: None)
  Receive Date: 20120104
  Receipt Date: 20111222
  Transmission Date: 20120608
  Serious: Yes (Hospitalization)
  Sender: FDA-Public Use
  Company Number: US-UCBSA-042990

PATIENT
  Age: 62 Year
  Sex: Female
  Weight: 170.1 kg

DRUGS (20)
  1. CIMZIA [Suspect]
     Indication: CROHN'S DISEASE
     Route: 058
     Dates: start: 20110629
  2. CIMZIA [Suspect]
     Dosage: 2ND DOSE: 16/MAR/2010
     Route: 058
     Dates: start: 20100302, end: 20100330
  3. ALBUTEROL [Concomitant]
     Dosage: NEBULIZER
  4. VITAMIN D [Concomitant]
     Dosage: 50000 UNITS EVRY WEEK
  5. MAGNESIUM OXIDE [Concomitant]
  6. BUDESONIDE [Concomitant]
     Dates: start: 20080801, end: 20110727
  7. CIMZIA [Suspect]
     Route: 058
     Dates: start: 20100330, end: 20100623
  8. ENTOCORT EC [Concomitant]
  9. LOSARTAN POTASSIUM [Concomitant]
     Dosage: 100 MG
  10. PREDNISONE TAB [Concomitant]
     Indication: CROHN'S DISEASE
  11. GABAPENTIN [Concomitant]
  12. POTASSIUM [Concomitant]
     Dosage: 20 MEQ
  13. TRAMADOL HCL [Concomitant]
     Dosage: 50 MG EVERY 4 HOURS
  14. NEXIUM [Concomitant]
     Dosage: 40 MG
  15. ADVAIR DISKUS 100/50 [Concomitant]
     Dosage: 250/50 ONE PUFF BIB
  16. LASIX [Concomitant]
     Dosage: 40 MG
  17. MAGNESIUM OXIDE [Concomitant]
  18. DICYCLOMINE [Concomitant]
  19. OXYCODONE HCL [Concomitant]
  20. DILTIAZEM CD [Concomitant]
     Dosage: 240 DAILY

REACTIONS (1)
  - ASTHMA [None]
